FAERS Safety Report 22180220 (Version 1)
Quarter: 2023Q2

REPORT INFORMATION
  Report Type: Spontaneous
  Country: NL (occurrence: NL)
  Receive Date: 20230406
  Receipt Date: 20230406
  Transmission Date: 20230722
  Serious: Yes (Death)
  Sender: FDA-Public Use
  Company Number: None

PATIENT
  Sex: Female
  Weight: 74 kg

DRUGS (5)
  1. CISPLATIN [Suspect]
     Active Substance: CISPLATIN
     Indication: Transitional cell carcinoma
     Dosage: CISPLATINE INFOPL CONC 1MG/ML / BRAND NAME NOT SPECIFIED, ACCORDING TO SCHEDULE ONCOLOGIST
     Route: 065
     Dates: start: 20230302, end: 20230308
  2. GEMCITABINE [Suspect]
     Active Substance: GEMCITABINE
     Indication: Transitional cell carcinoma
     Dosage: ACCORDING TO SCHEDULE ONCOLOGIST,  GEMCITABINE INFOPL CONC 100MG/ML / BRAND NAME NOT SPECIFIED
     Route: 065
     Dates: start: 20230302, end: 20230308
  3. ROSUVASTATIN [Concomitant]
     Active Substance: ROSUVASTATIN
     Indication: Product used for unknown indication
     Dosage: 5 MG (MILLIGRAM)
  4. COMARANIL [Concomitant]
     Indication: Product used for unknown indication
     Dosage: 4/1,25 MG (MILLIGRAM), STRENGTH : 4/1.25MG
  5. MOVICOLON [Concomitant]
     Active Substance: POLYETHYLENE GLYCOL 3350\POTASSIUM CHLORIDE\SODIUM BICARBONATE\SODIUM CHLORIDE
     Indication: Product used for unknown indication
     Dosage: MACROGOL/SALTS PDR V BEVERAGE (MOVIC/MOLAX/LAXT/GEN) / MOVICOLON POWDER FOR BEVERAGE IN SACHET

REACTIONS (1)
  - Cerebrovascular accident [Fatal]
